FAERS Safety Report 18103621 (Version 1)
Quarter: 2020Q3

REPORT INFORMATION
  Report Type: Spontaneous
  Country: US (occurrence: US)
  Receive Date: 20200731
  Receipt Date: 20200731
  Transmission Date: 20201103
  Serious: No
  Sender: FDA-Public Use
  Company Number: None

PATIENT
  Age: 62 Year
  Sex: Female
  Weight: 81 kg

DRUGS (10)
  1. ASPIRIN. [Concomitant]
     Active Substance: ASPIRIN
  2. VITAMIN B COMPLEX [Concomitant]
     Active Substance: CYANOCOBALAMIN\DEXPANTHENOL\NIACINAMIDE\PYRIDOXINE HYDROCHLORIDE\RIBOFLAVIN 5^-PHOSPHATE SODIUM\THIAMINE HYDROCHLORIDE\VITAMIN B COMPLEX
  3. AMBIEN 10 [Concomitant]
  4. NIACIN. [Concomitant]
     Active Substance: NIACIN
  5. EMGALITY [Suspect]
     Active Substance: GALCANEZUMAB-GNLM
     Indication: MIGRAINE
     Dosage: ?          OTHER FREQUENCY:LOADING DOSE;?
     Route: 058
     Dates: start: 20200715, end: 20200715
  6. GABAPENTIN 600 [Concomitant]
  7. XANAX [Concomitant]
     Active Substance: ALPRAZOLAM
  8. TUMERIC [Concomitant]
     Active Substance: HERBALS\TURMERIC
  9. METOPROLOL. [Concomitant]
     Active Substance: METOPROLOL
  10. D?3 [Concomitant]
     Active Substance: CHOLECALCIFEROL

REACTIONS (1)
  - Vertigo [None]

NARRATIVE: CASE EVENT DATE: 20200715
